FAERS Safety Report 11598933 (Version 2)
Quarter: 2015Q4

REPORT INFORMATION
  Report Type: Spontaneous
  Country: US (occurrence: US)
  Receive Date: 20151006
  Receipt Date: 20151113
  Transmission Date: 20160304
  Serious: No
  Sender: FDA-Public Use
  Company Number: US-BAYER-2015-437863

PATIENT
  Age: 65 Year
  Sex: Female

DRUGS (4)
  1. CLIMARA [Suspect]
     Active Substance: ESTRADIOL
     Indication: HORMONE REPLACEMENT THERAPY
     Dosage: 50 MCG/24HR, UNK
     Route: 062
     Dates: start: 1991
  2. CLIMARA [Suspect]
     Active Substance: ESTRADIOL
     Indication: HORMONE REPLACEMENT THERAPY
     Dosage: 50 MCG/24HR, CONT
     Route: 062
     Dates: start: 1995
  3. CLIMARA [Suspect]
     Active Substance: ESTRADIOL
     Indication: HORMONE REPLACEMENT THERAPY
     Dosage: 50 MCG/24HR
     Route: 062
     Dates: start: 1991
  4. CLIMARA [Suspect]
     Active Substance: ESTRADIOL
     Indication: HORMONE REPLACEMENT THERAPY
     Dosage: 50 MCG/24HR
     Route: 062
     Dates: start: 1991

REACTIONS (5)
  - Pigmentation disorder [None]
  - Application site rash [None]
  - Application site rash [None]
  - Application site rash [None]
  - Application site rash [None]

NARRATIVE: CASE EVENT DATE: 20151012
